FAERS Safety Report 11942827 (Version 1)
Quarter: 2016Q1

REPORT INFORMATION
  Report Type: Spontaneous
  Country: US (occurrence: US)
  Receive Date: 20160125
  Receipt Date: 20160125
  Transmission Date: 20160526
  Serious: No
  Sender: FDA-Public Use
  Company Number: US-UNITED THERAPEUTICS-UNT-2015-009289

PATIENT
  Age: 46 Year
  Sex: Female
  Weight: 130.61 kg

DRUGS (7)
  1. ADEMPAS [Concomitant]
     Active Substance: RIOCIGUAT
     Indication: PRODUCT USED FOR UNKNOWN INDICATION
  2. REMODULIN [Suspect]
     Active Substance: TREPROSTINIL
     Dosage: 0.0175 ?G/KG/MIN, CONTINUING
     Route: 058
  3. REMODULIN [Suspect]
     Active Substance: TREPROSTINIL
     Dosage: UNK
     Route: 058
  4. COUMADIN [Concomitant]
     Active Substance: WARFARIN SODIUM
     Indication: PRODUCT USED FOR UNKNOWN INDICATION
  5. REMODULIN [Suspect]
     Active Substance: TREPROSTINIL
     Dosage: 0.015 ?G/KG/MIN, CONTINUING
     Route: 058
  6. REMODULIN [Suspect]
     Active Substance: TREPROSTINIL
     Indication: PULMONARY HYPERTENSION
     Dosage: 0.022 ?G/KG/MIN, CONTINUING
     Route: 058
     Dates: start: 20150512
  7. REMODULIN [Suspect]
     Active Substance: TREPROSTINIL
     Dosage: 0.020 ?G/KG/MIN, CONTINUING

REACTIONS (15)
  - Rash [Unknown]
  - Infusion site rash [Recovered/Resolved]
  - Nausea [Unknown]
  - Infusion site infection [Unknown]
  - Infusion site pain [Not Recovered/Not Resolved]
  - Infusion site pustule [Unknown]
  - Infusion site erythema [Recovered/Resolved]
  - Headache [Unknown]
  - Device dislocation [Unknown]
  - Infusion site scab [Unknown]
  - Infusion site irritation [Unknown]
  - Infusion site oedema [Unknown]
  - Infusion site pruritus [Not Recovered/Not Resolved]
  - Infusion site inflammation [Unknown]
  - Drug dose omission [Unknown]

NARRATIVE: CASE EVENT DATE: 201507
